FAERS Safety Report 10273504 (Version 1)
Quarter: 2014Q3

REPORT INFORMATION
  Report Type: Spontaneous
  Country: US (occurrence: US)
  Receive Date: 20140702
  Receipt Date: 20140702
  Transmission Date: 20150326
  Serious: Yes (Death)
  Sender: FDA-Public Use
  Company Number: US-FRI-1000068649

PATIENT
  Age: 91 Year
  Sex: Female

DRUGS (2)
  1. NAMENDA [Suspect]
     Active Substance: MEMANTINE HYDROCHLORIDE
     Dosage: 20 MG
     Route: 048
  2. NAMENDA [Suspect]
     Active Substance: MEMANTINE HYDROCHLORIDE
     Indication: DEMENTIA

REACTIONS (1)
  - Death [Fatal]

NARRATIVE: CASE EVENT DATE: 201406
